FAERS Safety Report 22114856 (Version 1)
Quarter: 2023Q1

REPORT INFORMATION
  Report Type: Spontaneous
  Country: JP (occurrence: JP)
  Receive Date: 20230320
  Receipt Date: 20230320
  Transmission Date: 20230418
  Serious: Yes (Other)
  Sender: FDA-Public Use
  Company Number: JP-MTPC-MTPC2023-0006711AA

PATIENT
  Age: 55 Year
  Sex: Male

DRUGS (6)
  1. GANCICLOVIR [Suspect]
     Active Substance: GANCICLOVIR
     Indication: Product used for unknown indication
     Dosage: IV DRIP
     Route: 042
  2. REMICADE [Suspect]
     Active Substance: INFLIXIMAB
     Indication: Autoimmune colitis
     Route: 042
  3. CARBOPLATIN [Concomitant]
     Active Substance: CARBOPLATIN
     Indication: Lung adenocarcinoma
  4. PEMBROLIZUMAB [Concomitant]
     Active Substance: PEMBROLIZUMAB
     Indication: Lung adenocarcinoma
  5. PEMBROLIZUMAB [Concomitant]
     Active Substance: PEMBROLIZUMAB
     Indication: Lung adenocarcinoma
     Dosage: PEMBROLIZUMAB(GENETICAL RECOMBINATION)
  6. PEMETREXED [Concomitant]
     Active Substance: PEMETREXED
     Indication: Lung adenocarcinoma

REACTIONS (2)
  - Liver disorder [Recovered/Resolved]
  - Cytomegalovirus infection [Unknown]
